FAERS Safety Report 13582966 (Version 1)
Quarter: 2017Q2

REPORT INFORMATION
  Report Type: Other
  Country: GB (occurrence: GB)
  Receive Date: 20170525
  Receipt Date: 20170525
  Transmission Date: 20170830
  Serious: Yes (Other)
  Sender: FDA-Public Use
  Company Number: GB-ACORDA-ACO_138152_2017

PATIENT
  Age: 60 Year
  Sex: Male
  Weight: 117 kg

DRUGS (1)
  1. QUTENZA [Suspect]
     Active Substance: CAPSAICIN
     Indication: PAIN MANAGEMENT
     Dosage: 4 DF (PATCHES) APPLIED
     Route: 062
     Dates: start: 20170414, end: 20170414

REACTIONS (4)
  - Pain [Recovered/Resolved with Sequelae]
  - Drug administration error [Recovered/Resolved with Sequelae]
  - Blood pressure increased [Recovered/Resolved with Sequelae]
  - Application site pain [Recovered/Resolved with Sequelae]

NARRATIVE: CASE EVENT DATE: 20170414
